FAERS Safety Report 15049653 (Version 3)
Quarter: 2018Q2

REPORT INFORMATION
  Report Type: Spontaneous
  Country: US (occurrence: US)
  Receive Date: 20180622
  Receipt Date: 20180629
  Transmission Date: 20180711
  Serious: Yes (Hospitalization)
  Sender: FDA-Public Use
  Company Number: US-ALKERMES INC.-ALK-2018-003268

PATIENT
  Age: 54 Year
  Sex: Male

DRUGS (1)
  1. VIVITROL [Suspect]
     Active Substance: NALTREXONE
     Indication: ALCOHOLISM
     Dosage: 380 MG, QMO
     Route: 030
     Dates: start: 20180501

REACTIONS (5)
  - Inadequate analgesia [Not Recovered/Not Resolved]
  - Feeling abnormal [Not Recovered/Not Resolved]
  - Fall [Not Recovered/Not Resolved]
  - Cervical vertebral fracture [Not Recovered/Not Resolved]
  - Drug dependence [Unknown]

NARRATIVE: CASE EVENT DATE: 201806
